FAERS Safety Report 10284588 (Version 1)
Quarter: 2014Q3

REPORT INFORMATION
  Report Type: Spontaneous
  Country: US (occurrence: None)
  Receive Date: 20140703
  Receipt Date: 20140703
  Transmission Date: 20150326
  Serious: Yes (Hospitalization)
  Sender: FDA-Public Use
  Company Number: None

PATIENT
  Age: 72 Year
  Sex: Male
  Weight: 105.5 kg

DRUGS (1)
  1. BEVACIZUMAB (RHUMAB VEGF) (704865) [Suspect]
     Active Substance: BEVACIZUMAB

REACTIONS (11)
  - Dyspnoea [None]
  - Asthenia [None]
  - Atrial flutter [None]
  - Cellulitis [None]
  - Aspiration [None]
  - Periorbital oedema [None]
  - Somnolence [None]
  - Neurological symptom [None]
  - Tachycardia [None]
  - Encephalopathy [None]
  - Hypertension [None]

NARRATIVE: CASE EVENT DATE: 20140618
